FAERS Safety Report 9677998 (Version 1)
Quarter: 2013Q4

REPORT INFORMATION
  Report Type: Spontaneous
  Country: US (occurrence: US)
  Receive Date: 20131108
  Receipt Date: 20131108
  Transmission Date: 20140711
  Serious: No
  Sender: FDA-Public Use
  Company Number: US-BAYER-2013-136255

PATIENT
  Age: 76 Year
  Sex: Male

DRUGS (6)
  1. ALEVE CAPLET [Suspect]
     Indication: BACK PAIN
     Dosage: 1 DF, PRN
     Route: 048
     Dates: start: 20131025, end: 20131028
  2. CITRACAL [Concomitant]
  3. COZAAR [Concomitant]
  4. SERTRALINE [Concomitant]
  5. FISH OIL [Concomitant]
  6. GLUCOSAMINE [Concomitant]

REACTIONS (1)
  - Therapeutic response unexpected [None]
